FAERS Safety Report 20998558 (Version 1)
Quarter: 2022Q2

REPORT INFORMATION
  Report Type: Spontaneous
  Country: US (occurrence: None)
  Receive Date: 20220622
  Receipt Date: 20220622
  Transmission Date: 20220721
  Serious: Yes (Disabling)
  Sender: FDA-Public Use
  Company Number: None

PATIENT
  Age: 76 Year
  Sex: Female
  Weight: 61.2 kg

DRUGS (4)
  1. IOPAMIDOL [Suspect]
     Active Substance: IOPAMIDOL
     Indication: Diagnostic procedure
     Dosage: FREQUENCY : ONCE;?
     Route: 040
     Dates: start: 20220514, end: 20220514
  2. BUMETANIDE [Concomitant]
     Active Substance: BUMETANIDE
  3. FUROSEMIDE [Concomitant]
     Active Substance: FUROSEMIDE
     Dates: start: 20220510
  4. PIPERACILLIN SODIUM\TAZOBACTAM SODIUM [Concomitant]
     Active Substance: PIPERACILLIN SODIUM\TAZOBACTAM SODIUM

REACTIONS (4)
  - Nephropathy toxic [None]
  - Plasma cell myeloma [None]
  - End stage renal disease [None]
  - Haemodialysis [None]

NARRATIVE: CASE EVENT DATE: 20220514
